FAERS Safety Report 4667469-9 (Version None)
Quarter: 2005Q2

REPORT INFORMATION
  Report Type: 
  Country: None (occurrence: None)
  Receive Date: 20050520
  Receipt Date: 20040429
  Transmission Date: 20051028
  Serious: Yes (Death)
  Sender: FDA-Public Use
  Company Number: PH-2004-BP-03348RP

PATIENT
  Sex: Female

DRUGS (5)
  1. MICARDIS HCT [Suspect]
     Indication: HYPERTENSION
     Dosage: 40/12.5 MG
     Route: 048
     Dates: start: 20030316
  2. LASIX [Concomitant]
     Indication: CARDIAC FAILURE CONGESTIVE
  3. LANOXIN [Concomitant]
     Indication: CARDIAC FAILURE CONGESTIVE
  4. GLUCOPHAGE [Concomitant]
     Indication: DIABETES MELLITUS
     Route: 048
  5. TRANSDERM-NITRO 5 (NITROGLYCERINE) [Concomitant]
     Indication: CORONARY ARTERY DISEASE
     Route: 062

REACTIONS (1)
  - CARDIAC FAILURE CONGESTIVE [None]
